FAERS Safety Report 9468813 (Version 1)
Quarter: 2013Q3

REPORT INFORMATION
  Report Type: Spontaneous
  Country: DE (occurrence: DE)
  Receive Date: 20130821
  Receipt Date: 20130821
  Transmission Date: 20140515
  Serious: Yes (Other)
  Sender: FDA-Public Use
  Company Number: DE-B.I. PHARMACEUTICALS,INC./RIDGEFIELD-2013-BI-24962DE

PATIENT
  Age: 76 Year
  Sex: Male

DRUGS (3)
  1. PRADAXA [Suspect]
     Indication: PULMONARY ARTERY THROMBOSIS
     Dosage: 300 MG
     Dates: start: 20130813
  2. MARCUMAR [Concomitant]
  3. XARELTO [Concomitant]

REACTIONS (1)
  - Pulmonary artery thrombosis [Unknown]
